FAERS Safety Report 25901980 (Version 1)
Quarter: 2025Q4

REPORT INFORMATION
  Report Type: Spontaneous
  Country: US (occurrence: US)
  Receive Date: 20251009
  Receipt Date: 20251009
  Transmission Date: 20260118
  Serious: No
  Sender: Thea Pharma
  Company Number: US-THEA-2024000505

PATIENT
  Age: 55 Year
  Sex: Female

DRUGS (3)
  1. IYUZEH [Suspect]
     Active Substance: LATANOPROST
     Indication: Product used for unknown indication
     Route: 061
     Dates: start: 20240304
  2. ECHINACEA [Concomitant]
     Active Substance: ECHINACEA, UNSPECIFIED
     Indication: Product used for unknown indication
  3. CETIRIZINE [Concomitant]
     Active Substance: CETIRIZINE HYDROCHLORIDE
     Indication: Antiallergic therapy

REACTIONS (5)
  - Headache [Unknown]
  - Administration site rash [Recovering/Resolving]
  - Skin lesion [Unknown]
  - Product prescribing error [Unknown]
  - Incorrect route of product administration [Unknown]

NARRATIVE: CASE EVENT DATE: 20240304
